FAERS Safety Report 18626889 (Version 5)
Quarter: 2021Q2

REPORT INFORMATION
  Report Type: Report from Study
  Country: None (occurrence: CO)
  Receive Date: 20201217
  Receipt Date: 20210408
  Transmission Date: 20210717
  Serious: Yes (Hospitalization, Other)
  Sender: FDA-Public Use
  Company Number: CO-ABBVIE-20K-036-3695799-00

PATIENT
  Age: 47 Year
  Sex: Male
  Weight: 59 kg

DRUGS (2)
  1. HUMIRA [Suspect]
     Active Substance: ADALIMUMAB
     Indication: CROHN^S DISEASE
     Route: 058
     Dates: start: 20130815
  2. HUMIRA [Suspect]
     Active Substance: ADALIMUMAB
     Indication: CROHN^S DISEASE
     Route: 058
     Dates: end: 20201123

REACTIONS (6)
  - Feeling of despair [Recovering/Resolving]
  - Wound [Recovering/Resolving]
  - Anxiety [Recovering/Resolving]
  - Peritonitis [Recovering/Resolving]
  - Intestinal perforation [Recovering/Resolving]
  - Ileocaecal resection [Recovered/Resolved]

NARRATIVE: CASE EVENT DATE: 2020
